FAERS Safety Report 7402655-6 (Version None)
Quarter: 2011Q2

REPORT INFORMATION
  Report Type: 
  Country: None (occurrence: None)
  Receive Date: 20110408
  Receipt Date: 20110405
  Transmission Date: 20111010
  Serious: No
  Sender: FDA-Public Use
  Company Number: US-PFIZER INC-2011022132

PATIENT
  Sex: Male

DRUGS (15)
  1. ASPIRIN [Concomitant]
     Dosage: 81 MG, 1X/DAY
  2. RESTORIL [Concomitant]
     Dosage: 15 MG, UNK
  3. SYNTHROID [Concomitant]
     Dosage: UNK
  4. NIACIN [Concomitant]
     Dosage: 500 MG, 3X/DAY
  5. FISH OIL [Concomitant]
     Dosage: 1000 MG, 2X/DAY
  6. ICAPS [Concomitant]
     Dosage: UNK
  7. OLIVE LEAVES EXTRACT [Concomitant]
  8. ZITHROMAX [Suspect]
     Indication: LYME DISEASE
     Dosage: 250 MG, 1X/DAY
     Route: 041
     Dates: start: 20100428, end: 20100625
  9. HYDROCHLOROTHIAZIDE [Concomitant]
     Dosage: 25 MG, 1X/DAY
  10. LEXAPRO [Concomitant]
     Dosage: 10 MG, 1X/DAY
  11. ZYRTEC [Concomitant]
     Dosage: UNK
  12. XANAX [Concomitant]
  13. ZETIA [Concomitant]
     Dosage: 10 MG, 1X/DAY
  14. CALCIUM MAGNESIUM ZINC [Concomitant]
     Dosage: UNK
  15. LUTEIN [Concomitant]
     Dosage: UNK

REACTIONS (1)
  - TREMOR [None]
